FAERS Safety Report 22641527 (Version 1)
Quarter: 2023Q2

REPORT INFORMATION
  Report Type: Spontaneous
  Country: US (occurrence: US)
  Receive Date: 20230626
  Receipt Date: 20230626
  Transmission Date: 20230722
  Serious: No
  Sender: FDA-Public Use
  Company Number: US-BAUSCH-BL-2023-009495

PATIENT
  Age: 79 Year
  Sex: Female
  Weight: 44.038 kg

DRUGS (4)
  1. RETIN-A [Suspect]
     Active Substance: TRETINOIN
     Indication: Skin wrinkling
     Route: 061
  2. RETIN-A [Suspect]
     Active Substance: TRETINOIN
     Indication: Acne
  3. TRETINOIN [Concomitant]
     Active Substance: TRETINOIN
     Indication: Product used for unknown indication
  4. HYDROCHLORIC ACID [Concomitant]
     Active Substance: HYDROCHLORIC ACID
     Indication: Product used for unknown indication
     Dosage: PURITY PRODUCT HYDROCHLORIC ACID

REACTIONS (1)
  - Therapeutic product effect incomplete [Unknown]
